FAERS Safety Report 24254996 (Version 6)
Quarter: 2025Q3

REPORT INFORMATION
  Report Type: Spontaneous
  Country: US (occurrence: US)
  Receive Date: 20240827
  Receipt Date: 20250912
  Transmission Date: 20251020
  Serious: Yes (Other)
  Sender: PFIZER
  Company Number: US-PFIZER INC-PV202400110283

PATIENT
  Age: 75 Year
  Sex: Female
  Weight: 66.7 kg

DRUGS (10)
  1. IBRANCE [Suspect]
     Active Substance: PALBOCICLIB
     Indication: Breast cancer metastatic
     Dates: start: 202308
  2. IBRANCE [Suspect]
     Active Substance: PALBOCICLIB
  3. IBRANCE [Suspect]
     Active Substance: PALBOCICLIB
  4. IBRANCE [Suspect]
     Active Substance: PALBOCICLIB
     Dates: start: 2024, end: 202501
  5. IBRANCE [Suspect]
     Active Substance: PALBOCICLIB
     Route: 048
  6. FASLODEX [Concomitant]
     Active Substance: FULVESTRANT
     Dates: start: 202308
  7. ZOMETA [Concomitant]
     Active Substance: ZOLEDRONIC ACID
     Dates: start: 202308
  8. FULVESTRANT [Concomitant]
     Active Substance: FULVESTRANT
     Dates: start: 202308
  9. FULVESTRANT [Concomitant]
     Active Substance: FULVESTRANT
     Dates: start: 202310
  10. ZOLEDRONIC ACID [Concomitant]
     Active Substance: ZOLEDRONIC ACID
     Dates: start: 202308

REACTIONS (2)
  - Cataract [Unknown]
  - Neutropenia [Not Recovered/Not Resolved]

NARRATIVE: CASE EVENT DATE: 20250117
